FAERS Safety Report 11860825 (Version 2)
Quarter: 2015Q4

REPORT INFORMATION
  Report Type: Report from Study
  Country: US (occurrence: US)
  Receive Date: 20151222
  Receipt Date: 20151223
  Transmission Date: 20160305
  Serious: Yes (Hospitalization)
  Sender: FDA-Public Use
  Company Number: US-ARIAD PHARMACEUTICALS, INC-2015US005794

PATIENT
  Sex: Male

DRUGS (1)
  1. ICLUSIG [Suspect]
     Active Substance: PONATINIB
     Indication: HAEMATOPOIETIC NEOPLASM
     Dosage: 30 MG, QD
     Route: 048
     Dates: start: 20151125

REACTIONS (2)
  - Cerebrovascular accident [Unknown]
  - Off label use [Not Recovered/Not Resolved]
